FAERS Safety Report 9162055 (Version 1)
Quarter: 2013Q1

REPORT INFORMATION
  Report Type: Spontaneous
  Country: US (occurrence: None)
  Receive Date: 20130225
  Receipt Date: 20130225
  Transmission Date: 20140127
  Serious: Yes (Other)
  Sender: FDA-Public Use
  Company Number: FK201300494

PATIENT
  Sex: 0

DRUGS (2)
  1. PROPOFOL [Suspect]
     Indication: INDUCTION OF ANAESTHESIA
     Route: 042
  2. REMIFENTANIL [Suspect]
     Indication: INDUCTION OF ANAESTHESIA

REACTIONS (1)
  - Serotonin syndrome [None]
